FAERS Safety Report 7637548-2 (Version None)
Quarter: 2011Q3

REPORT INFORMATION
  Report Type: 
  Country: None (occurrence: None)
  Receive Date: 20110726
  Receipt Date: 20110719
  Transmission Date: 20111222
  Serious: Yes (Other)
  Sender: FDA-Public Use
  Company Number: US-PFIZER INC-2011164569

PATIENT
  Sex: Female

DRUGS (2)
  1. GEODON [Suspect]
     Indication: DELUSION
  2. GEODON [Suspect]
     Indication: HALLUCINATION
     Dosage: 60 MG, UNK

REACTIONS (3)
  - DYSKINESIA [None]
  - WEIGHT DECREASED [None]
  - DYSARTHRIA [None]
